FAERS Safety Report 10598337 (Version 1)
Quarter: 2014Q4

REPORT INFORMATION
  Report Type: Spontaneous
  Country: GB (occurrence: None)
  Receive Date: 20141119
  Receipt Date: 20141119
  Transmission Date: 20150529
  Serious: Yes (Hospitalization)
  Sender: FDA-Public Use
  Company Number: IMP_08160_2014

PATIENT
  Age: 68 Year
  Sex: Male

DRUGS (11)
  1. SALBUTAMOL [Concomitant]
     Active Substance: ALBUTEROL
  2. METFORMIN [Concomitant]
     Active Substance: METFORMIN HYDROCHLORIDE
  3. GLICLAZIDE [Concomitant]
     Active Substance: GLICLAZIDE
  4. SERETIDE [Concomitant]
     Active Substance: FLUTICASONE FUROATE\SALMETEROL XINAFOATE
  5. OMEPRAZOLE. [Suspect]
     Active Substance: OMEPRAZOLE
     Indication: PRODUCT USED FOR UNKNOWN INDICATION
     Dosage: (DF)
  6. AMLODIPINE [Concomitant]
     Active Substance: AMLODIPINE BESYLATE
  7. LISINOPRIL. [Concomitant]
     Active Substance: LISINOPRIL
  8. ROSUVASTATIN [Concomitant]
     Active Substance: ROSUVASTATIN
  9. PIOGLITAZONE [Concomitant]
     Active Substance: PIOGLITAZONE
  10. INDAPAMIDE. [Suspect]
     Active Substance: INDAPAMIDE
     Indication: HYPERTENSION
     Dosage: DF
  11. CORTICOSTEROIDS [Suspect]
     Active Substance: CORTICOSTEROID NOS
     Indication: PRODUCT USED FOR UNKNOWN INDICATION
     Dosage: (DF)

REACTIONS (10)
  - Tetany [None]
  - Tremor [None]
  - Liver palpable [None]
  - Chvostek^s sign [None]
  - Hypomagnesaemia [None]
  - Chronic obstructive pulmonary disease [None]
  - Muscular weakness [None]
  - Hypocalcaemia [None]
  - Muscle twitching [None]
  - Paraesthesia [None]

NARRATIVE: CASE EVENT DATE: 20090603
